FAERS Safety Report 4269795-4 (Version None)
Quarter: 2004Q1

REPORT INFORMATION
  Report Type: 
  Country: None (occurrence: None)
  Receive Date: 20040113
  Receipt Date: 20031223
  Transmission Date: 20041129
  Serious: Yes (Death)
  Sender: FDA-Public Use
  Company Number: 6989

PATIENT
  Age: 72 Year
  Sex: Female

DRUGS (6)
  1. AMIODARONE [Suspect]
     Dosage: 900 MG / 200 MG TID IV/PO
     Route: 042
     Dates: start: 20031122, end: 20031123
  2. AMIODARONE [Suspect]
     Dosage: 900 MG / 200 MG TID IV/PO
     Route: 042
     Dates: start: 20031123
  3. FLUDROCORTISONE ACETATE [Concomitant]
  4. ATORVASTATIN [Concomitant]
  5. ASPIRIN [Concomitant]
  6. CORTISONE [Concomitant]

REACTIONS (7)
  - BONE MARROW DEPRESSION [None]
  - CARDIAC ARREST [None]
  - CARDIAC FAILURE [None]
  - HEPATORENAL FAILURE [None]
  - METABOLIC ACIDOSIS [None]
  - MULTI-ORGAN FAILURE [None]
  - RENAL FAILURE ACUTE [None]
